FAERS Safety Report 25596378 (Version 1)
Quarter: 2025Q3

REPORT INFORMATION
  Report Type: Spontaneous
  Country: GB (occurrence: GB)
  Receive Date: 20250723
  Receipt Date: 20250723
  Transmission Date: 20251021
  Serious: Yes (Other)
  Sender: DR REDDYS
  Company Number: None

PATIENT
  Age: 7 Year
  Sex: Female
  Weight: 23 kg

DRUGS (5)
  1. MONTELUKAST [Suspect]
     Active Substance: MONTELUKAST
     Indication: Asthma
     Dosage: ...AT NIGHT
     Route: 048
     Dates: start: 20240822
  2. CHLORPHENIRAMINE MALEATE [Concomitant]
     Active Substance: CHLORPHENIRAMINE MALEATE
     Indication: Ill-defined disorder
     Dates: start: 20250707
  3. EASYCHAMBER SPACER [Concomitant]
     Indication: Ill-defined disorder
     Dates: start: 20250529
  4. ALBUTEROL [Concomitant]
     Active Substance: ALBUTEROL
     Indication: Ill-defined disorder
     Dates: start: 20240822
  5. SOPROBEC [Concomitant]
     Indication: Ill-defined disorder
     Dates: start: 20240822

REACTIONS (4)
  - Anxiety [Not Recovered/Not Resolved]
  - Self-injurious ideation [Not Recovered/Not Resolved]
  - Obsessive-compulsive symptom [Not Recovered/Not Resolved]
  - Neuropsychological symptoms [Unknown]

NARRATIVE: CASE EVENT DATE: 20250101
